FAERS Safety Report 8912815 (Version 2)
Quarter: 2012Q4

REPORT INFORMATION
  Report Type: 
  Country: US (occurrence: US)
  Receive Date: 20121116
  Receipt Date: 20121127
  Transmission Date: 20130627
  Serious: No
  Sender: FDA-Public Use
  Company Number: US-PFIZER INC-2012284475

PATIENT
  Sex: Female

DRUGS (3)
  1. XANAX [Suspect]
     Dosage: UNK
  2. IMURAN [Suspect]
     Dosage: UNK
  3. PLAQUENIL [Suspect]
     Dosage: UNK

REACTIONS (2)
  - Malaise [Unknown]
  - Adverse drug reaction [Unknown]
